FAERS Safety Report 5314550-7 (Version None)
Quarter: 2007Q2

REPORT INFORMATION
  Report Type: 
  Country: None (occurrence: None)
  Receive Date: 20070502
  Receipt Date: 20070423
  Transmission Date: 20071010
  Serious: Yes (Hospitalization, Other)
  Sender: FDA-Public Use
  Company Number: PHHO2006VE16020

PATIENT
  Age: 37 Year
  Sex: Female

DRUGS (3)
  1. GLEEVEC [Suspect]
     Indication: CHRONIC MYELOID LEUKAEMIA
     Dosage: 400 MG, QD
     Route: 048
  2. DILANTIN [Concomitant]
     Indication: EPILEPSY
     Dates: start: 19960101
  3. FENOBARBITAL [Concomitant]
     Indication: EPILEPSY
     Dates: start: 20060501

REACTIONS (6)
  - COAGULOPATHY [None]
  - HEPATOMEGALY [None]
  - HEPATOTOXICITY [None]
  - JAUNDICE [None]
  - TRANSAMINASES INCREASED [None]
  - VOMITING [None]
